FAERS Safety Report 5811750-4 (Version None)
Quarter: 2008Q3

REPORT INFORMATION
  Report Type: 
  Country: None (occurrence: None)
  Receive Date: 20080716
  Receipt Date: 20080711
  Transmission Date: 20090109
  Serious: Yes (Hospitalization)
  Sender: FDA-Public Use
  Company Number: B0529081A

PATIENT
  Age: 74 Year
  Sex: Male

DRUGS (4)
  1. AMOXICILLIN [Suspect]
     Route: 065
     Dates: start: 20080104
  2. GLIBENCLAMIDE [Suspect]
     Dosage: 2.5MG PER DAY
     Route: 048
  3. LANSOPRAZOLE [Suspect]
     Indication: GASTRIC ULCER
     Dosage: 30MG PER DAY
     Route: 065
     Dates: start: 20071101
  4. CLARITHROMYCIN [Suspect]
     Route: 065
     Dates: start: 20080104

REACTIONS (2)
  - ALTERED STATE OF CONSCIOUSNESS [None]
  - HYPOGLYCAEMIA [None]
